FAERS Safety Report 4285821-0 (Version None)
Quarter: 2004Q1

REPORT INFORMATION
  Report Type: 
  Country: None (occurrence: None)
  Receive Date: 20040203
  Receipt Date: 20040122
  Transmission Date: 20041129
  Serious: Yes (Hospitalization, Other)
  Sender: FDA-Public Use
  Company Number: HQWYE210409JAN04

PATIENT
  Age: 54 Year
  Sex: 0

DRUGS (4)
  1. CORDARONE [Suspect]
     Indication: ATRIAL FIBRILLATION
     Dosage: SEE IMAGE
  2. CORDARONE [Suspect]
     Indication: ATRIAL FIBRILLATION
     Dosage: SEE IMAGE
  3. BUMETANIDE [Concomitant]
  4. ENALAPRIL MALEATE [Concomitant]

REACTIONS (19)
  - AFFECT LABILITY [None]
  - AGITATION [None]
  - BLOOD CREATININE INCREASED [None]
  - BLOOD POTASSIUM INCREASED [None]
  - BLOOD SODIUM DECREASED [None]
  - BLOOD UREA INCREASED [None]
  - CARDIAC FAILURE [None]
  - CARDIAC FAILURE CONGESTIVE [None]
  - CONFUSIONAL STATE [None]
  - DELIRIUM [None]
  - DEPRESSION [None]
  - DISEASE PROGRESSION [None]
  - INSOMNIA [None]
  - MENTAL STATUS CHANGES [None]
  - PARANOIA [None]
  - RASH MACULAR [None]
  - RENAL IMPAIRMENT [None]
  - SPEECH DISORDER [None]
  - TANGENTIALITY [None]
